FAERS Safety Report 8958151 (Version 2)
Quarter: 2012Q4

REPORT INFORMATION
  Report Type: 
  Country: US (occurrence: US)
  Receive Date: 20121211
  Receipt Date: 20121228
  Transmission Date: 20130627
  Serious: Yes (Hospitalization)
  Sender: FDA-Public Use
  Company Number: US-WATSON-2012-20794

PATIENT
  Age: 73 Year
  Sex: Male
  Weight: 85 kg

DRUGS (13)
  1. TRELSTAR [Suspect]
     Indication: PROSTATE CANCER
     Dosage: 45mg 1 in 6 week
     Route: 030
     Dates: start: 20090918, end: 20091222
  2. BICALUTAMIDE [Suspect]
     Indication: PROSTATE CANCER
     Dosage: 50 mg, UNK
     Route: 048
     Dates: start: 20091208
  3. BEVACIZUMAB [Suspect]
     Indication: PROSTATE CANCER
     Dosage: frequency repo
     Route: 042
     Dates: start: 20090915, end: 20100216
  4. DOCETAXEL [Suspect]
     Indication: PROSTATE CANCER
     Dosage: frequency repo
     Route: 042
     Dates: start: 20090915, end: 20091117
  5. VERAPAMIL [Concomitant]
     Indication: HYPERTENSION
     Dosage: 240 mg, UNK
     Route: 048
     Dates: start: 20101231
  6. ENALAPRIL [Concomitant]
     Indication: HYPERTENSION
     Dosage: 20 mg, UNK
     Route: 048
     Dates: start: 1980
  7. ZOCOR [Concomitant]
     Indication: HYPERCHOLESTEROLAEMIA
     Dosage: 20 mg, UNK
     Route: 048
     Dates: start: 2001
  8. NEXIUM                             /01479302/ [Concomitant]
     Indication: GASTROOESOPHAGEAL REFLUX DISEASE
     Dosage: 40 mg, UNK
     Route: 048
     Dates: start: 2008
  9. LEVEMIR [Concomitant]
     Indication: DIABETES MELLITUS
     Dosage: 15 u daily
     Route: 058
     Dates: start: 20090521
  10. AMARYL [Concomitant]
     Indication: DIABETES MELLITUS
     Dosage: 4 mg, UNK
     Route: 048
     Dates: start: 2000
  11. CREON [Concomitant]
     Indication: PANCREATITIS
     Dosage: 1 DF 3 in 1 D
     Route: 048
     Dates: start: 2008
  12. COMPAZINE                          /00013302/ [Concomitant]
     Indication: NAUSEA
     Dosage: 10 mg, as necessary
     Route: 048
     Dates: start: 20090915
  13. LYRICA [Concomitant]
     Indication: NEURITIS
     Dosage: UNK
     Route: 065
     Dates: start: 20100310, end: 20100314

REACTIONS (4)
  - Nodal rhythm [Unknown]
  - Pain [Unknown]
  - Skin infection [Unknown]
  - Chest discomfort [Unknown]
